FAERS Safety Report 6725969-1 (Version None)
Quarter: 2010Q2

REPORT INFORMATION
  Report Type: 
  Country: None (occurrence: None)
  Receive Date: 20100514
  Receipt Date: 20080318
  Transmission Date: 20101027
  Serious: Yes (Other)
  Sender: FDA-Public Use
  Company Number: PHHY2008BR36961

PATIENT
  Sex: Female
  Weight: 88 kg

DRUGS (6)
  1. DIOVAN [Suspect]
     Indication: HYPERTENSION
     Dosage: 160 MG, QD
     Route: 048
     Dates: start: 20080313, end: 20080317
  2. SIBUTRAMINE [Concomitant]
  3. PASSIFLORA [Concomitant]
     Dosage: UNK
  4. RHAMNUS PURSHIANA [Concomitant]
     Dosage: UNK
  5. SENE [Concomitant]
     Dosage: UNK
  6. ALOIN [Concomitant]

REACTIONS (3)
  - ANURIA [None]
  - BLOOD PRESSURE INCREASED [None]
  - EAR DISCOMFORT [None]
